FAERS Safety Report 21636303 (Version 1)
Quarter: 2022Q4

REPORT INFORMATION
  Report Type: Spontaneous
  Country: CA (occurrence: CA)
  Receive Date: 20221124
  Receipt Date: 20221124
  Transmission Date: 20230113
  Serious: Yes (Hospitalization, Other)
  Sender: FDA-Public Use
  Company Number: CA-CHEPLA-2022010688

PATIENT
  Age: 78 Year
  Sex: Male

DRUGS (2)
  1. HYDROXYUREA [Suspect]
     Active Substance: HYDROXYUREA
     Indication: Polycythaemia vera
     Dosage: 5 YEARS?DAILY DOSE: 1500 MILLIGRAM
     Route: 048
  2. ASPIRIN [Suspect]
     Active Substance: ASPIRIN
     Indication: Polycythaemia vera
     Dosage: 5 YEARS?DAILY DOSE: 81 MILLIGRAM
     Route: 048

REACTIONS (2)
  - Osteomyelitis [Recovering/Resolving]
  - Skin ulcer [Recovering/Resolving]
